FAERS Safety Report 4515630-6 (Version None)
Quarter: 2004Q4

REPORT INFORMATION
  Report Type: 
  Country: None (occurrence: None)
  Receive Date: 20040930
  Receipt Date: 20040713
  Transmission Date: 20050328
  Serious: No
  Sender: FDA-Public Use
  Company Number: USA-2004-0012540

PATIENT
  Age: 42 Year
  Sex: Female

DRUGS (3)
  1. SPECTRACEF [Suspect]
     Indication: PHARYNGITIS
     Dosage: 200 MG
     Dates: start: 20040116, end: 20040121
  2. SPECTRACEF [Suspect]
     Indication: RESPIRATORY DISORDER
     Dosage: 200 MG
     Dates: start: 20040116, end: 20040121
  3. BEXTRA [Suspect]

REACTIONS (3)
  - HYPERSENSITIVITY [None]
  - LYMPHADENOPATHY [None]
  - RASH [None]
